FAERS Safety Report 16885502 (Version 3)
Quarter: 2019Q4

REPORT INFORMATION
  Report Type: Spontaneous
  Country: US (occurrence: US)
  Receive Date: 20191004
  Receipt Date: 20191205
  Transmission Date: 20200122
  Serious: Yes (Hospitalization, Other)
  Sender: FDA-Public Use
  Company Number: US-PARI RESPIRATORY EQUIPMENT, INC.-2019PAR00096

PATIENT
  Age: 55 Year
  Sex: Female
  Weight: 52.15 kg

DRUGS (14)
  1. SYMBICORT [Concomitant]
     Active Substance: BUDESONIDE\FORMOTEROL FUMARATE DIHYDRATE
  2. PROBIOTIC [Concomitant]
     Active Substance: PROBIOTICS NOS
  3. KITABIS PAK [Suspect]
     Active Substance: TOBRAMYCIN
     Indication: PSEUDOMONAS INFECTION
     Dosage: 300 MG, 2X/DAY (28 DAYS ON AND 28 DAYS OFF)
     Dates: start: 20190901
  4. SACCHAROMYCES BOULARDII [Concomitant]
     Active Substance: SACCHAROMYCES CEREVISIAE
     Dosage: 250 MG, 2X/DAY
     Route: 048
  5. ACETAMINOPHEN. [Concomitant]
     Active Substance: ACETAMINOPHEN
     Dosage: 650 MG, UP TO 4X/DAY (EVERY 6 HOURS AS NEEDED)
     Route: 048
  6. VITAMIN D [Concomitant]
     Active Substance: VITAMIN D NOS
     Dosage: 50000 U, 1X/WEEK
     Route: 048
  7. LOTEMAX [Concomitant]
     Active Substance: LOTEPREDNOL ETABONATE
     Dosage: 1 DROP, 2X/DAY IN TO BOTH EYES
     Route: 047
  8. KITABIS PAK [Suspect]
     Active Substance: TOBRAMYCIN
     Indication: NOCARDIOSIS
  9. RESTASIS [Concomitant]
     Active Substance: CYCLOSPORINE
     Dosage: 1 DROP, 2X/DAY TO BOTH EYES (EVERY 12 HOURS)
     Route: 047
  10. SULFAMETHOXAZOLE-TRIMETHOPRIM [Concomitant]
     Active Substance: SULFAMETHOXAZOLE\TRIMETHOPRIM
     Dosage: 2 TABLETS, 2X/DAY
     Route: 048
  11. SODIUM CHLORIDE. [Concomitant]
     Active Substance: SODIUM CHLORIDE
  12. FAMOTIDINE. [Concomitant]
     Active Substance: FAMOTIDINE
     Dosage: 20 MG
     Route: 048
  13. PEPCID [Concomitant]
     Active Substance: FAMOTIDINE
  14. ALBUTEROL. [Concomitant]
     Active Substance: ALBUTEROL
     Dosage: 2 ACTUATIONS, 4X/DAY (EVERY SIX HOURS AS NEEDED)

REACTIONS (3)
  - Chronic obstructive pulmonary disease [Recovering/Resolving]
  - Pneumonia [Unknown]
  - Off label use [Not Recovered/Not Resolved]

NARRATIVE: CASE EVENT DATE: 20190901
